FAERS Safety Report 6539819-X (Version None)
Quarter: 2010Q1

REPORT INFORMATION
  Report Type: 
  Country: None (occurrence: None)
  Receive Date: 20100115
  Receipt Date: 20091222
  Transmission Date: 20100710
  Serious: No
  Sender: FDA-Public Use
  Company Number: US-JNJFOC-20091008474

PATIENT

DRUGS (1)
  1. NUCYNTA [Suspect]
     Indication: PAIN
     Route: 048

REACTIONS (2)
  - INSOMNIA [None]
  - TACHYPHRENIA [None]
